FAERS Safety Report 21343114 (Version 4)
Quarter: 2022Q4

REPORT INFORMATION
  Report Type: Spontaneous
  Country: US (occurrence: US)
  Receive Date: 20220916
  Receipt Date: 20221214
  Transmission Date: 20230113
  Serious: No
  Sender: FDA-Public Use
  Company Number: US-PFIZER INC-202201162071

PATIENT
  Age: 64 Year
  Sex: Male
  Weight: 136.08 kg

DRUGS (1)
  1. VYNDAMAX [Suspect]
     Active Substance: TAFAMIDIS
     Indication: Amyloidosis senile
     Dosage: 61 MG
     Dates: end: 202204

REACTIONS (3)
  - Malaise [Unknown]
  - Hypoacusis [Unknown]
  - Musculoskeletal disorder [Unknown]
